FAERS Safety Report 7512486-4 (Version None)
Quarter: 2011Q2

REPORT INFORMATION
  Report Type: 
  Country: None (occurrence: None)
  Receive Date: 20110525
  Receipt Date: 20110525
  Transmission Date: 20111010
  Serious: Yes (Hospitalization)
  Sender: FDA-Public Use
  Company Number: None

PATIENT
  Age: 3 Month
  Sex: Female
  Weight: 241 kg

DRUGS (1)
  1. LOVENOX [Suspect]
     Indication: CEREBRAL INFARCTION
     Dosage: 5MG SQ Q12HR
     Route: 058
     Dates: start: 20110228, end: 20110506

REACTIONS (3)
  - RASH [None]
  - IRRITABILITY [None]
  - PYREXIA [None]
